FAERS Safety Report 9905353 (Version 2)
Quarter: 2014Q2

REPORT INFORMATION
  Report Type: Spontaneous
  Country: US (occurrence: US)
  Receive Date: 20140218
  Receipt Date: 20140401
  Transmission Date: 20141212
  Serious: No
  Sender: FDA-Public Use
  Company Number: US-PFIZER INC-2014043101

PATIENT
  Age: 87 Year
  Sex: Female

DRUGS (1)
  1. PREMARIN [Suspect]
     Indication: VULVOVAGINAL DRYNESS
     Dosage: 0.625 MG, ABOUT ONCE A WEEK
     Route: 067
     Dates: start: 2008

REACTIONS (3)
  - Breast hyperplasia [Recovered/Resolved]
  - Product quality issue [Unknown]
  - Feeling abnormal [Unknown]
